FAERS Safety Report 6044054-8 (Version None)
Quarter: 2009Q1

REPORT INFORMATION
  Report Type: 
  Country: None (occurrence: None)
  Receive Date: 20090120
  Receipt Date: 20090116
  Transmission Date: 20090719
  Serious: Yes (Hospitalization)
  Sender: FDA-Public Use
  Company Number: SE-PURDUE-GBR_2009_0004760

PATIENT
  Age: 79 Year
  Sex: Female

DRUGS (12)
  1. OXYCONTIN [Suspect]
     Indication: OSTEOPOROSIS
     Dosage: 20 MG, DAILY
     Route: 048
     Dates: start: 20080601
  2. ENALAPRIL MALEATE [Suspect]
     Indication: HYPERTONIA
     Dosage: 20 MG, DAILY
     Route: 048
  3. SALURES [Suspect]
     Indication: HYPERTONIA
     Dosage: 2.5 MG, DAILY
     Route: 048
     Dates: start: 20081117
  4. PAMOL                              /00020001/ [Concomitant]
     Indication: DRUG USE FOR UNKNOWN INDICATION
     Dosage: UNK, UNK
     Route: 065
  5. MOVICOL                            /01749801/ [Concomitant]
     Indication: DRUG USE FOR UNKNOWN INDICATION
     Dosage: UNK, UNK
     Route: 065
  6. FELODIPINE [Concomitant]
     Indication: DRUG USE FOR UNKNOWN INDICATION
     Dosage: UNK, UNK
     Route: 065
  7. ZOPIKLON [Concomitant]
     Indication: DRUG USE FOR UNKNOWN INDICATION
     Dosage: UNK, UNK
     Route: 065
  8. CALCICHEW-D3 [Concomitant]
     Indication: DRUG USE FOR UNKNOWN INDICATION
     Dosage: UNK, UNK
     Route: 065
  9. NEUROL                             /00595201/ [Concomitant]
     Indication: DRUG USE FOR UNKNOWN INDICATION
     Dosage: UNK, UNK
     Route: 065
  10. BETOLVEX                           /00056201/ [Concomitant]
     Indication: DRUG USE FOR UNKNOWN INDICATION
     Dosage: 1 MG, UNK
     Route: 065
  11. ATENOLOL [Concomitant]
     Indication: DRUG USE FOR UNKNOWN INDICATION
     Dosage: UNK, UNK
     Route: 065
  12. CILAXORAL [Concomitant]
     Indication: DRUG USE FOR UNKNOWN INDICATION
     Dosage: UNK, UNK
     Route: 065

REACTIONS (2)
  - CONSTIPATION [None]
  - HYPONATRAEMIA [None]
